FAERS Safety Report 7296492-3 (Version None)
Quarter: 2011Q1

REPORT INFORMATION
  Report Type: 
  Country: None (occurrence: None)
  Receive Date: 20110216
  Receipt Date: 20110202
  Transmission Date: 20110831
  Serious: Yes (Other)
  Sender: FDA-Public Use
  Company Number: PHHY2011US09115

PATIENT
  Sex: Female

DRUGS (1)
  1. AFINITOR [Suspect]
     Dosage: 10 MG, QD

REACTIONS (4)
  - RADIATION INJURY [None]
  - HAEMOGLOBIN DECREASED [None]
  - INTESTINAL HAEMORRHAGE [None]
  - GASTROINTESTINAL INJURY [None]
